FAERS Safety Report 23441957 (Version 1)
Quarter: 2024Q1

REPORT INFORMATION
  Report Type: Spontaneous
  Country: US (occurrence: US)
  Receive Date: 20240125
  Receipt Date: 20240125
  Transmission Date: 20240410
  Serious: No
  Sender: FDA-Public Use
  Company Number: US-RISINGPHARMA-US-2024RISSPO00017

PATIENT
  Sex: Female

DRUGS (1)
  1. PREGABALIN [Suspect]
     Active Substance: PREGABALIN
     Indication: Product used for unknown indication
     Route: 065

REACTIONS (5)
  - Muscle spasms [Unknown]
  - Insomnia [Unknown]
  - Malaise [Unknown]
  - Diarrhoea [Unknown]
  - Headache [Unknown]
